FAERS Safety Report 15009197 (Version 3)
Quarter: 2018Q2

REPORT INFORMATION
  Report Type: Spontaneous
  Country: DE (occurrence: DE)
  Receive Date: 20180614
  Receipt Date: 20180620
  Transmission Date: 20180711
  Serious: Yes (Death, Hospitalization, Other)
  Sender: FDA-Public Use
  Company Number: DE-TEVA-2018-DE-906416

PATIENT
  Sex: Male

DRUGS (21)
  1. PREDNISOLONE. [Suspect]
     Active Substance: PREDNISOLONE
     Indication: B-CELL LYMPHOMA
     Dosage: 100 MILLIGRAM DAILY; 100 MG, 1 IN1 D
     Route: 065
     Dates: end: 20151019
  2. RITUXIMAB. [Suspect]
     Active Substance: RITUXIMAB
     Dosage: 705 MILLIGRAM DAILY; 705 MG, 1 IN 1 D
     Route: 042
  3. ASPIRIN. [Concomitant]
     Active Substance: ASPIRIN
     Indication: WOUND TREATMENT
     Dosage: 100 MILLIGRAM DAILY; 100 MG, 1 IN 1 D
  4. INSULIN [Concomitant]
     Active Substance: INSULIN NOS
     Indication: DIABETES MELLITUS
     Dosage: UNK
     Route: 058
  5. TRIMETHOPRIM. [Concomitant]
     Active Substance: TRIMETHOPRIM
     Indication: PROPHYLAXIS
     Dosage: 960 MG, 1 IN 2 WK
     Route: 048
     Dates: start: 20150902
  6. ATORVASTATIN [Concomitant]
     Active Substance: ATORVASTATIN
     Dosage: 30 MILLIGRAM DAILY; 30 MG, 1 IN 1 D
     Route: 048
  7. RAMIPRIL. [Concomitant]
     Active Substance: RAMIPRIL
     Indication: HYPERTENSION
     Dosage: 10 MILLIGRAM DAILY; 10 MG, 1 IN 1 D
     Route: 048
  8. ACICLOVIR [Concomitant]
     Active Substance: ACYCLOVIR
     Indication: PROPHYLAXIS
     Dosage: 400 MILLIGRAM DAILY; 400 MG, 1 IN 1 D
     Route: 048
     Dates: start: 20150902
  9. CLOPIDOGREL [Concomitant]
     Active Substance: CLOPIDOGREL BISULFATE
     Indication: THROMBOSIS PROPHYLAXIS
     Dosage: 75 MG, UNK
     Route: 048
  10. SULFAMETHOXAZOL [Concomitant]
     Active Substance: SULFAMETHOXAZOLE
     Indication: PROPHYLAXIS
     Dosage: 960 MG, Q2WK
     Route: 048
     Dates: start: 20150902
  11. LEVOTHYROXINE SODIUM. [Concomitant]
     Active Substance: LEVOTHYROXINE SODIUM
     Indication: THYROIDECTOMY
     Dosage: 125 MILLIGRAM DAILY; 125 MG, 1 IN 1 D
     Route: 048
  12. CYCLOPHOSPHAMIDE. [Suspect]
     Active Substance: CYCLOPHOSPHAMIDE
     Indication: B-CELL LYMPHOMA
     Dosage: 1410 MILLIGRAM DAILY; 1410 MG, 1 IN 1 D
     Route: 042
  13. PEGFILGRASTIM [Suspect]
     Active Substance: PEGFILGRASTIM
     Indication: B-CELL LYMPHOMA
     Dosage: 6 MILLIGRAM DAILY; 6 MG, 1 IN 1 D
     Route: 058
     Dates: start: 20151018
  14. METOPROLOL SUCCINATE. [Concomitant]
     Active Substance: METOPROLOL SUCCINATE
     Indication: HYPERTENSION
     Dosage: BID (1/2-0-1/2)
     Route: 048
  15. DOXORUBICIN [Suspect]
     Active Substance: DOXORUBICIN
     Indication: B-CELL LYMPHOMA
     Dosage: 94 MILLIGRAM DAILY; 94 MG, 1 IN 1 D
     Route: 042
  16. CIPROFLOXACIN. [Concomitant]
     Active Substance: CIPROFLOXACIN
     Indication: PROPHYLAXIS
     Dosage: 1000 MILLIGRAM DAILY; 500 MG, 2 IN 1 D
     Dates: end: 20150902
  17. RITUXIMAB. [Suspect]
     Active Substance: RITUXIMAB
     Indication: B-CELL LYMPHOMA
     Dosage: 678.75 MILLIGRAM DAILY; 678.75 MG, 1 IN 1 D
     Route: 042
     Dates: start: 20160229
  18. ATORVASTATIN [Concomitant]
     Active Substance: ATORVASTATIN
     Indication: HYPERTENSION
     Dosage: 4.75 MILLIGRAM DAILY; 4.75 MG, 1 IN 1 D
     Route: 048
  19. ATORVASTATIN [Concomitant]
     Active Substance: ATORVASTATIN
     Indication: HYPERTRIGLYCERIDAEMIA
     Dosage: 4.75 MILLIGRAM DAILY; 47.5 MG, 2 IN 1 D (1/2-0-1/2)
     Route: 048
  20. VINCRISTINE [Suspect]
     Active Substance: VINCRISTINE
     Indication: B-CELL LYMPHOMA
     Dosage: 3.76 MILLIGRAM DAILY;
     Route: 042
  21. ASPIRIN. [Concomitant]
     Active Substance: ASPIRIN
     Indication: THROMBOSIS PROPHYLAXIS
     Dosage: 100 MG, QD

REACTIONS (4)
  - Neutrophil count decreased [Unknown]
  - Haemorrhage intracranial [Fatal]
  - Subarachnoid haemorrhage [Fatal]
  - Monoparesis [Recovered/Resolved]

NARRATIVE: CASE EVENT DATE: 20151028
